FAERS Safety Report 10957121 (Version 1)
Quarter: 2015Q1

REPORT INFORMATION
  Report Type: Spontaneous
  Country: US (occurrence: US)
  Receive Date: 20150326
  Receipt Date: 20150326
  Transmission Date: 20150721
  Serious: No
  Sender: FDA-Public Use
  Company Number: US-PFIZER INC-2015102902

PATIENT
  Sex: Female

DRUGS (3)
  1. METFORMIN HCL [Suspect]
     Active Substance: METFORMIN HYDROCHLORIDE
     Dosage: UNK
  2. BYETTA [Suspect]
     Active Substance: EXENATIDE
     Dosage: UNK
  3. GLIPIZIDE. [Suspect]
     Active Substance: GLIPIZIDE
     Dosage: UNK

REACTIONS (2)
  - Blood glucose increased [Unknown]
  - Drug ineffective [Unknown]
